FAERS Safety Report 19047471 (Version 2)
Quarter: 2021Q2

REPORT INFORMATION
  Report Type: Report from Study
  Country: US (occurrence: US)
  Receive Date: 20210323
  Receipt Date: 20210407
  Transmission Date: 20210717
  Serious: Yes (Hospitalization, Other)
  Sender: FDA-Public Use
  Company Number: US-BAUSCH-BL-2021-010009

PATIENT
  Age: 61 Year
  Sex: Female

DRUGS (3)
  1. XIFAXAN [Suspect]
     Active Substance: RIFAXIMIN
     Indication: HEPATIC ENCEPHALOPATHY
     Dosage: MISSED APPROXIMATELY 2 WEEKS OF XIFAXAN A COUPLE OF YEARS AGO
     Route: 048
     Dates: end: 2019
  2. XIFAXAN [Suspect]
     Active Substance: RIFAXIMIN
     Dosage: USED BUNCH OF OLD MEDICATION
     Route: 048
  3. XIFAXAN [Suspect]
     Active Substance: RIFAXIMIN
     Dosage: RESTARTED ON 2 WEEKS AGO PRIOR TO THE REPORT
     Route: 048
     Dates: start: 202103

REACTIONS (7)
  - Red blood cell count decreased [Unknown]
  - Insurance issue [Unknown]
  - Haemophilia [Unknown]
  - Haemorrhage [Recovered/Resolved]
  - Expired product administered [Unknown]
  - Hepatic cirrhosis [Unknown]
  - Therapy interrupted [Unknown]

NARRATIVE: CASE EVENT DATE: 2019
